FAERS Safety Report 7609374-1 (Version None)
Quarter: 2011Q3

REPORT INFORMATION
  Report Type: 
  Country: None (occurrence: None)
  Receive Date: 20110714
  Receipt Date: 20110711
  Transmission Date: 20111222
  Serious: Yes (Hospitalization)
  Sender: FDA-Public Use
  Company Number: PHHO2011DE10142

PATIENT
  Sex: Female
  Weight: 65 kg

DRUGS (7)
  1. PREGABALIN [Concomitant]
  2. RAMIPRIL [Concomitant]
  3. ASPIRIN [Concomitant]
  4. EVEROLIMUS [Suspect]
     Indication: LUNG TRANSPLANT
     Dosage: 1.5 MG, UNK
     Route: 048
     Dates: start: 20090521
  5. DILTIAZEM [Concomitant]
  6. PREDNISOLONE [Concomitant]
     Dosage: 5 MG, UNK
     Dates: start: 20090423
  7. CYCLOSPORINE [Suspect]
     Indication: LUNG TRANSPLANT
     Dosage: 100 MG, UNK
     Dates: start: 20090423

REACTIONS (4)
  - NEPHROPATHY TOXIC [None]
  - RENAL FAILURE [None]
  - TRANSIENT ISCHAEMIC ATTACK [None]
  - BRAIN STEM SYNDROME [None]
